FAERS Safety Report 6669792-5 (Version None)
Quarter: 2010Q2

REPORT INFORMATION
  Report Type: 
  Country: None (occurrence: None)
  Receive Date: 20100402
  Receipt Date: 20091111
  Transmission Date: 20101027
  Serious: Yes (Congenital Anomaly)
  Sender: FDA-Public Use
  Company Number: LEO-2010-00196

PATIENT
  Sex: Female

DRUGS (7)
  1. INNOHEP [Suspect]
     Dosage: TRANSPLACENTAL
     Route: 064
     Dates: start: 20070407
  2. DEXAMEHTAZONE (DEXAMETHASONE) [Concomitant]
  3. PHENERGAN (PROMETHAZINE) [Concomitant]
  4. MEPERIDINE HCL [Concomitant]
  5. ATOSIBAN (ATOSIBAN) [Concomitant]
  6. BENZY PENICILLIN (BENZYLPENICILLIN) [Concomitant]
  7. CEPHALEXIN [Concomitant]

REACTIONS (2)
  - CONGENITAL ACROCHORDON [None]
  - MATERNAL DRUGS AFFECTING FOETUS [None]
